FAERS Safety Report 15645337 (Version 1)
Quarter: 2018Q4

REPORT INFORMATION
  Report Type: Other
  Country: IT (occurrence: IT)
  Receive Date: 20181121
  Receipt Date: 20181121
  Transmission Date: 20190205
  Serious: Yes (Life-Threatening, Hospitalization, Other)
  Sender: FDA-Public Use
  Company Number: IT-NOSTRUM LABORATORIES, INC.-2059175

PATIENT
  Age: 38 Year
  Sex: Male
  Weight: 2.78 kg

DRUGS (1)
  1. MORPHINE SULFATE. [Suspect]
     Active Substance: MORPHINE SULFATE
     Indication: PAIN
     Route: 042

REACTIONS (2)
  - Caesarean section [Recovered/Resolved]
  - Tachycardia foetal [Recovered/Resolved]
